FAERS Safety Report 8135714-3 (Version None)
Quarter: 2012Q1

REPORT INFORMATION
  Report Type: 
  Country: None (occurrence: None)
  Receive Date: 20120103
  Receipt Date: 20111102
  Transmission Date: 20120608
  Serious: No
  Sender: FDA-Public Use
  Company Number: AE-2011-003026

PATIENT
  Age: 69 Year
  Sex: Male
  Weight: 72.5755 kg

DRUGS (3)
  1. RIBAPAK (RIBAVIRIN) [Concomitant]
  2. INCIVEK [Suspect]
     Dosage: (750 MG, EVERY 7 TO 9 HOURS), ORAL
     Route: 048
     Dates: start: 20111016
  3. PEGASYS [Concomitant]

REACTIONS (9)
  - ANORECTAL DISCOMFORT [None]
  - EATING DISORDER [None]
  - INCORRECT DRUG ADMINISTRATION DURATION [None]
  - DIARRHOEA [None]
  - VOMITING [None]
  - NAUSEA [None]
  - DYSPNOEA [None]
  - WEIGHT DECREASED [None]
  - HAEMATOCHEZIA [None]
